FAERS Safety Report 21547202 (Version 1)
Quarter: 2022Q4

REPORT INFORMATION
  Report Type: Spontaneous
  Country: CN (occurrence: CN)
  Receive Date: 20221103
  Receipt Date: 20221103
  Transmission Date: 20230113
  Serious: Yes (Hospitalization)
  Sender: FDA-Public Use
  Company Number: CN-JNJFOC-20221052965

PATIENT
  Age: 66 Year
  Sex: Male
  Weight: 43 kg

DRUGS (2)
  1. RISPERDAL [Suspect]
     Active Substance: RISPERIDONE
     Indication: Psychotic disorder
     Route: 048
     Dates: start: 20221002, end: 20221013
  2. OLANZAPINE [Concomitant]
     Active Substance: OLANZAPINE
     Indication: Psychotic disorder
     Route: 048
     Dates: start: 20221002, end: 20221013

REACTIONS (4)
  - Extrapyramidal disorder [Recovering/Resolving]
  - Hypertonia [Recovering/Resolving]
  - Bronchitis [Recovering/Resolving]
  - Hypoproteinaemia [Recovering/Resolving]

NARRATIVE: CASE EVENT DATE: 20221013
